FAERS Safety Report 17492357 (Version 1)
Quarter: 2020Q1

REPORT INFORMATION
  Report Type: Spontaneous
  Country: US (occurrence: US)
  Receive Date: 20200303
  Receipt Date: 20200303
  Transmission Date: 20200409
  Serious: No
  Sender: FDA-Public Use
  Company Number: US-NOVOPROD-693751

PATIENT
  Age: 70 Year
  Sex: Female

DRUGS (1)
  1. VICTOZA [Suspect]
     Active Substance: LIRAGLUTIDE
     Indication: WEIGHT DECREASED
     Dosage: 1.8 MG
     Route: 058
     Dates: start: 20190416, end: 20191025

REACTIONS (3)
  - Alopecia [Not Recovered/Not Resolved]
  - Product use in unapproved indication [Recovered/Resolved]
  - Blood thyroid stimulating hormone decreased [Not Recovered/Not Resolved]

NARRATIVE: CASE EVENT DATE: 20190416
